FAERS Safety Report 5252394-5 (Version None)
Quarter: 2007Q1

REPORT INFORMATION
  Report Type: 
  Country: None (occurrence: None)
  Receive Date: 20070301
  Receipt Date: 20061101
  Transmission Date: 20070707
  Serious: No
  Sender: FDA-Public Use
  Company Number: US-BRISTOL-MYERS SQUIBB COMPANY-13563150

PATIENT

DRUGS (2)
  1. TAXOL [Suspect]
     Route: 042
  2. CARBOPLATIN [Suspect]

REACTIONS (1)
  - DYSPNOEA [None]
